FAERS Safety Report 9363776 (Version 1)
Quarter: 2013Q2

REPORT INFORMATION
  Report Type: Report from Study
  Country: GB (occurrence: GB)
  Receive Date: 20130624
  Receipt Date: 20130624
  Transmission Date: 20140414
  Serious: Yes (Death)
  Sender: FDA-Public Use
  Company Number: GB-CELGENEUS-167-21880-13062045

PATIENT
  Age: 73 Year
  Sex: Male

DRUGS (6)
  1. REVLIMID [Suspect]
     Indication: PLASMA CELL MYELOMA
     Route: 048
     Dates: start: 20130507
  2. REVLIMID [Suspect]
     Route: 048
     Dates: end: 20130602
  3. DEXAMETHASONE [Suspect]
     Indication: PLASMA CELL MYELOMA
     Route: 048
     Dates: start: 20130507
  4. DEXAMETHASONE [Suspect]
     Route: 048
     Dates: end: 20130602
  5. CYCLOPHOSPHAMIDE [Suspect]
     Indication: PLASMA CELL MYELOMA
     Route: 048
     Dates: start: 20130507
  6. CYCLOPHOSPHAMIDE [Suspect]
     Route: 048
     Dates: end: 20130602

REACTIONS (1)
  - Cardiac arrest [Fatal]
